FAERS Safety Report 5243425-7 (Version None)
Quarter: 2007Q1

REPORT INFORMATION
  Report Type: 
  Country: None (occurrence: None)
  Receive Date: 20070215
  Receipt Date: 20070129
  Transmission Date: 20070707
  Serious: Yes (Hospitalization, Other)
  Sender: FDA-Public Use
  Company Number: 2007PL000003

PATIENT
  Age: 46 Year
  Sex: Male

DRUGS (5)
  1. AZATHIOPRINE [Suspect]
     Dosage: 50 MG; QD; PO  100 MG;QD;PO
     Route: 048
  2. AZATHIOPRINE [Suspect]
     Dosage: 50 MG; QD; PO  100 MG;QD;PO
     Route: 048
  3. PREDNISONE [Concomitant]
  4. METHOTREXATE [Concomitant]
  5. SULFASALAZINE [Concomitant]

REACTIONS (17)
  - ABDOMINAL PAIN UPPER [None]
  - ALANINE AMINOTRANSFERASE INCREASED [None]
  - ARTHRALGIA [None]
  - ASPARTATE AMINOTRANSFERASE INCREASED [None]
  - BLOOD BILIRUBIN INCREASED [None]
  - CHOLECYSTITIS ACUTE [None]
  - DIZZINESS [None]
  - DRUG HYPERSENSITIVITY [None]
  - GENERAL PHYSICAL HEALTH DETERIORATION [None]
  - HAEMODYNAMIC INSTABILITY [None]
  - HEPATIC ENZYME INCREASED [None]
  - MALAISE [None]
  - MYALGIA [None]
  - NAUSEA [None]
  - SEPSIS [None]
  - SHOCK [None]
  - VOMITING [None]
